FAERS Safety Report 25535954 (Version 1)
Quarter: 2025Q3

REPORT INFORMATION
  Report Type: Spontaneous
  Country: US (occurrence: US)
  Receive Date: 20250709
  Receipt Date: 20250709
  Transmission Date: 20251020
  Serious: No
  Sender: CALLIDITAS THERAPEUTICS AB
  Company Number: US-Calliditas-2025CAL01883

PATIENT
  Age: 63 Year
  Sex: Female

DRUGS (3)
  1. TARPEYO [Suspect]
     Active Substance: BUDESONIDE
     Indication: IgA nephropathy
     Route: 048
     Dates: start: 20250127
  2. ALLOPURINOL [Concomitant]
     Active Substance: ALLOPURINOL
  3. LOSARTAN [Concomitant]
     Active Substance: LOSARTAN

REACTIONS (4)
  - Taste disorder [Not Recovered/Not Resolved]
  - Candida infection [Not Recovered/Not Resolved]
  - Cushingoid [Not Recovered/Not Resolved]
  - Weight increased [Not Recovered/Not Resolved]
